FAERS Safety Report 10461994 (Version 1)
Quarter: 2014Q3

REPORT INFORMATION
  Report Type: Spontaneous
  Country: US (occurrence: None)
  Receive Date: 20140917
  Receipt Date: 20140917
  Transmission Date: 20150326
  Serious: Yes (Hospitalization)
  Sender: FDA-Public Use
  Company Number: None

PATIENT
  Age: 60 Year
  Sex: Female

DRUGS (13)
  1. LEVOTHYROXINE [Concomitant]
     Active Substance: LEVOTHYROXINE
  2. COLACE [Concomitant]
     Active Substance: DOCUSATE SODIUM
  3. LASIX [Concomitant]
     Active Substance: FUROSEMIDE
  4. CALCIUM [Concomitant]
     Active Substance: CALCIUM
  5. MULTIVITAMIN [Concomitant]
     Active Substance: VITAMINS
  6. ATENOLOL. [Concomitant]
     Active Substance: ATENOLOL
  7. ENALAPRIL [Concomitant]
     Active Substance: ENALAPRIL
  8. SPRYCEL [Suspect]
     Active Substance: DASATINIB
     Indication: CHRONIC MYELOID LEUKAEMIA
     Dosage: ONE TABLET, ONCE DAILY, ORAL
     Route: 048
  9. MUCINEX [Concomitant]
     Active Substance: GUAIFENESIN
  10. VOLTAREN [Concomitant]
     Active Substance: DICLOFENAC SODIUM
  11. PEPCID [Concomitant]
     Active Substance: FAMOTIDINE
  12. COUMADIN [Concomitant]
     Active Substance: WARFARIN SODIUM
  13. SIMVASTATIN. [Concomitant]
     Active Substance: SIMVASTATIN

REACTIONS (1)
  - Blood count abnormal [None]

NARRATIVE: CASE EVENT DATE: 20140916
